FAERS Safety Report 4311647-5 (Version None)
Quarter: 2004Q1

REPORT INFORMATION
  Report Type: 
  Country: None (occurrence: None)
  Receive Date: 20040303
  Receipt Date: 20040303
  Transmission Date: 20041129
  Serious: Yes (Life-Threatening)
  Sender: FDA-Public Use
  Company Number: None

PATIENT
  Age: 32 Year
  Sex: Female
  Weight: 60 kg

DRUGS (3)
  1. YASMIN [Suspect]
     Indication: CONTRACEPTION
     Dosage: 1 QD ORAL
     Route: 048
     Dates: start: 20030101, end: 20040226
  2. LAMICTAL [Concomitant]
  3. WELLBUTRIN [Concomitant]

REACTIONS (1)
  - PULMONARY EMBOLISM [None]
